FAERS Safety Report 11116321 (Version 26)
Quarter: 2019Q2

REPORT INFORMATION
  Report Type: Report from Study
  Country: AT (occurrence: AT)
  Receive Date: 20150515
  Receipt Date: 20190607
  Transmission Date: 20190711
  Serious: Yes (Death, Hospitalization, Other)
  Sender: FDA-Public Use
  Company Number: AT-INCYTE CORPORATION-2015IN001195

PATIENT

DRUGS (67)
  1. JAKAVI [Suspect]
     Active Substance: RUXOLITINIB
     Dosage: 10 MG, UNK
     Route: 065
     Dates: start: 20140618, end: 20150209
  2. JAKAVI [Suspect]
     Active Substance: RUXOLITINIB
     Dosage: UNK
     Route: 065
     Dates: start: 20131112, end: 20140407
  3. SINTROM [Suspect]
     Active Substance: ACENOCOUMAROL
     Indication: ATRIAL FIBRILLATION
     Dosage: 0.5 DF,0.5 TABLET DAILY 6X/WEEK, 1 TABLET / WEEK (TUESDAYS)
     Route: 065
  4. SINTROM [Suspect]
     Active Substance: ACENOCOUMAROL
     Dosage: UNK
     Route: 065
     Dates: start: 200510
  5. DIGIMERCK [Concomitant]
     Active Substance: DIGITOXIN
     Dosage: UNK
     Route: 065
     Dates: start: 20110112
  6. TEBOFORTAN [Concomitant]
     Active Substance: GINKGO
     Dosage: UNK
     Route: 065
     Dates: start: 20071114
  7. SPIRIVA [Concomitant]
     Active Substance: TIOTROPIUM BROMIDE MONOHYDRATE
     Indication: PRODUCT USED FOR UNKNOWN INDICATION
     Dosage: 18 UG, QD (1-0-0)
     Route: 065
  8. UROSIN                             /00003301/ [Concomitant]
     Dosage: UNK
     Route: 065
     Dates: start: 20140505
  9. TRITTICO [Concomitant]
     Active Substance: TRAZODONE HYDROCHLORIDE
     Indication: PRODUCT USED FOR UNKNOWN INDICATION
     Dosage: 150 MG, QD(0-0-0-1)
     Route: 065
  10. PANTOPRAZOL [Concomitant]
     Active Substance: PANTOPRAZOLE SODIUM
     Indication: PRODUCT USED FOR UNKNOWN INDICATION
     Dosage: 20 MG, BID (1-0-1)
     Route: 065
  11. CAUMADIN [Concomitant]
     Active Substance: WARFARIN SODIUM
     Indication: PRODUCT USED FOR UNKNOWN INDICATION
     Dosage: UNK
     Route: 065
  12. JAKAVI [Suspect]
     Active Substance: RUXOLITINIB
     Dosage: 5 MG, UNK
     Route: 065
     Dates: start: 20150302, end: 20150409
  13. JAKAVI [Suspect]
     Active Substance: RUXOLITINIB
     Dosage: 20 MG, UNK
     Route: 065
     Dates: start: 20130621, end: 20131111
  14. JAKAVI [Suspect]
     Active Substance: RUXOLITINIB
     Dosage: 15 MG, UNK
     Route: 065
     Dates: start: 20130626, end: 20130827
  15. DIGIMERCK [Concomitant]
     Active Substance: DIGITOXIN
     Indication: PRODUCT USED FOR UNKNOWN INDICATION
     Dosage: 0.1 MG, QD (1-0-0)
     Route: 065
     Dates: start: 20110112
  16. CYKLOKAPRON [Concomitant]
     Active Substance: TRANEXAMIC ACID
     Indication: PRODUCT USED FOR UNKNOWN INDICATION
     Dosage: UNK
     Route: 065
     Dates: start: 20150202
  17. NEUPRO [Concomitant]
     Active Substance: ROTIGOTINE
     Indication: PRODUCT USED FOR UNKNOWN INDICATION
     Dosage: UNK
     Route: 065
     Dates: start: 20130626
  18. JAKAVI [Suspect]
     Active Substance: RUXOLITINIB
     Indication: MYELOFIBROSIS
     Dosage: 10 MG, QD
     Route: 065
  19. JAKAVI [Suspect]
     Active Substance: RUXOLITINIB
     Dosage: 15 MG, UNK
     Route: 065
     Dates: start: 20130626
  20. JAKAVI [Suspect]
     Active Substance: RUXOLITINIB
     Dosage: 10 MG, UNK
     Route: 065
  21. EUTHYROX [Concomitant]
     Active Substance: LEVOTHYROXINE SODIUM
     Indication: PRODUCT USED FOR UNKNOWN INDICATION
     Dosage: 1.25 DF, QD (1 ? -0 -0)
     Route: 065
  22. NOMEXOR [Concomitant]
     Active Substance: NEBIVOLOL HYDROCHLORIDE
     Indication: PRODUCT USED FOR UNKNOWN INDICATION
     Dosage: 5 MG, BID (1-0-1)
     Route: 065
     Dates: start: 20090424
  23. DAFLON                             /00426001/ [Concomitant]
     Active Substance: DIOSMIN
     Indication: PRODUCT USED FOR UNKNOWN INDICATION
     Dosage: 1 DF, BID (1-0-1)
     Route: 065
  24. COLDISTOP [Concomitant]
     Indication: PRODUCT USED FOR UNKNOWN INDICATION
     Dosage: UNK UNK, TID
     Route: 045
  25. EFFECTIN                           /00533902/ [Concomitant]
     Active Substance: BITOLTEROL MESYLATE
     Indication: PRODUCT USED FOR UNKNOWN INDICATION
     Dosage: UNK
     Route: 065
     Dates: start: 20090505
  26. MIFLONIDE [Concomitant]
     Active Substance: BUDESONIDE
     Indication: PRODUCT USED FOR UNKNOWN INDICATION
     Dosage: UNK
     Route: 065
     Dates: start: 200711, end: 20140225
  27. JAKAVI [Suspect]
     Active Substance: RUXOLITINIB
     Dosage: 5 MG, BID
     Route: 065
  28. JAKAVI [Suspect]
     Active Substance: RUXOLITINIB
     Dosage: 5 MG, UNK
     Route: 065
     Dates: start: 20140505, end: 20140617
  29. JAKAVI [Suspect]
     Active Substance: RUXOLITINIB
     Dosage: 5 MG, UNK
     Route: 065
     Dates: start: 20150210, end: 20150301
  30. JAKAVI [Suspect]
     Active Substance: RUXOLITINIB
     Dosage: 10 MG, UNK
     Route: 065
     Dates: start: 20150220, end: 20150320
  31. JAKAVI [Suspect]
     Active Substance: RUXOLITINIB
     Dosage: 10 MG, UNK
     Route: 065
     Dates: start: 20140707, end: 20150930
  32. TEBOFORTAN [Concomitant]
     Active Substance: GINKGO
     Indication: PRODUCT USED FOR UNKNOWN INDICATION
     Dosage: 1 DF, QD (0-1-0)
     Route: 065
  33. EFECTIN [Concomitant]
     Active Substance: VENLAFAXINE HYDROCHLORIDE
     Indication: PRODUCT USED FOR UNKNOWN INDICATION
     Dosage: 75 MG, QD (1-0-0)
     Route: 065
  34. LASIX [Concomitant]
     Active Substance: FUROSEMIDE
     Indication: PRODUCT USED FOR UNKNOWN INDICATION
     Dosage: 40 MG, BIW (2X WEEKLY 1-0-0)
     Route: 065
  35. SPIRIVA [Concomitant]
     Active Substance: TIOTROPIUM BROMIDE MONOHYDRATE
     Dosage: UNK
     Route: 065
     Dates: start: 20061218
  36. VALSARCOMP [Concomitant]
     Active Substance: HYDROCHLOROTHIAZIDE\VALSARTAN
     Indication: PRODUCT USED FOR UNKNOWN INDICATION
     Dosage: 1 DF, QD (1-0-0)
     Route: 065
  37. VALSARCOMP [Concomitant]
     Active Substance: HYDROCHLOROTHIAZIDE\VALSARTAN
     Dosage: UNK
     Route: 065
     Dates: start: 20130410
  38. STERIMAR                           /01339701/ [Concomitant]
     Active Substance: SEA WATER
     Indication: PRODUCT USED FOR UNKNOWN INDICATION
     Dosage: 5 OT, QD
     Route: 045
  39. EXFORGE [Concomitant]
     Active Substance: AMLODIPINE BESYLATE\VALSARTAN
     Indication: PRODUCT USED FOR UNKNOWN INDICATION
     Dosage: UNK
     Route: 065
     Dates: start: 20150831
  40. JAKAVI [Suspect]
     Active Substance: RUXOLITINIB
     Dosage: UNK
     Route: 065
     Dates: start: 20130218
  41. JAKAVI [Suspect]
     Active Substance: RUXOLITINIB
     Dosage: 10 MG, UNK
     Route: 065
     Dates: start: 20130828, end: 20140504
  42. JAKAVI [Suspect]
     Active Substance: RUXOLITINIB
     Dosage: 20 MG, UNK
     Route: 065
     Dates: start: 20140507, end: 20140706
  43. JAKAVI [Suspect]
     Active Substance: RUXOLITINIB
     Dosage: 30 MG, UNK
     Route: 065
     Dates: start: 20140408, end: 20140416
  44. NOMEXOR [Concomitant]
     Active Substance: NEBIVOLOL HYDROCHLORIDE
     Dosage: 5 MG, BID (1-0-1)
     Route: 065
  45. UROSIN                             /00003301/ [Concomitant]
     Indication: PRODUCT USED FOR UNKNOWN INDICATION
     Dosage: 300 MG, QD (0-0-1)
     Route: 065
  46. MOXONIDIN [Concomitant]
     Active Substance: MOXONIDINE
     Indication: PRODUCT USED FOR UNKNOWN INDICATION
     Dosage: UNK
     Route: 065
     Dates: start: 201302, end: 20150301
  47. MIFLONIDE [Concomitant]
     Active Substance: BUDESONIDE
     Dosage: UNK
     Route: 065
     Dates: start: 20140701
  48. MYOCET                             /00330903/ [Concomitant]
     Active Substance: DOXORUBICIN HYDROCHLORIDE
     Indication: PRODUCT USED FOR UNKNOWN INDICATION
     Route: 065
  49. JAKAVI [Suspect]
     Active Substance: RUXOLITINIB
     Dosage: 10 MG, UNK
     Route: 065
     Dates: start: 20130808, end: 20130808
  50. JAKAVI [Suspect]
     Active Substance: RUXOLITINIB
     Dosage: UNK
     Route: 065
     Dates: start: 20140417, end: 20140426
  51. JAKAVI [Suspect]
     Active Substance: RUXOLITINIB
     Dosage: 20 MG, UNK
     Route: 065
     Dates: start: 20141001, end: 20150219
  52. NOMEXOR [Concomitant]
     Active Substance: NEBIVOLOL HYDROCHLORIDE
     Dosage: UNK
     Route: 065
  53. VALSARCOMP [Concomitant]
     Active Substance: HYDROCHLOROTHIAZIDE\VALSARTAN
     Dosage: 160/25 MG
     Route: 065
  54. PROSPAN                            /01017805/ [Concomitant]
     Indication: COUGH
     Dosage: UNK
     Route: 065
     Dates: start: 20150831
  55. JAKAVI [Suspect]
     Active Substance: RUXOLITINIB
     Dosage: 5 MG, BID
     Route: 065
  56. EFECTIN [Concomitant]
     Active Substance: VENLAFAXINE HYDROCHLORIDE
     Dosage: UNK
     Route: 065
  57. CLINDAMYCIN. [Concomitant]
     Active Substance: CLINDAMYCIN
     Indication: PRODUCT USED FOR UNKNOWN INDICATION
     Dosage: UNK
     Route: 065
     Dates: start: 20051104, end: 20151110
  58. OLEOVIT D3 [Concomitant]
     Active Substance: CHOLECALCIFEROL
     Indication: PRODUCT USED FOR UNKNOWN INDICATION
     Dosage: UNK
     Route: 065
     Dates: start: 20131217, end: 20140504
  59. PANTOPRAZOLE [Concomitant]
     Active Substance: PANTOPRAZOLE
     Indication: PRODUCT USED FOR UNKNOWN INDICATION
     Dosage: UNK
     Route: 065
     Dates: start: 20140505
  60. CHOP [Concomitant]
     Active Substance: CYCLOPHOSPHAMIDE\DOXORUBICIN\PREDNISONE\VINCRISTINE
     Indication: PRODUCT USED FOR UNKNOWN INDICATION
     Dosage: 6 CYCLES
     Route: 065
  61. JAKAVI [Suspect]
     Active Substance: RUXOLITINIB
     Dosage: 10 MG, (5 MG BID)
     Route: 065
     Dates: start: 20150410
  62. JAKAVI [Suspect]
     Active Substance: RUXOLITINIB
     Dosage: 10 MG, UNK
     Route: 065
     Dates: start: 20140427, end: 20140506
  63. EUTHYROX [Concomitant]
     Active Substance: LEVOTHYROXINE SODIUM
     Dosage: UNK
     Route: 065
     Dates: start: 20000517
  64. EUTHYROX [Concomitant]
     Active Substance: LEVOTHYROXINE SODIUM
     Dosage: 100 ?G, UNK
     Route: 065
  65. ELOMEL [Concomitant]
     Indication: PRODUCT USED FOR UNKNOWN INDICATION
     Dosage: 1000 ML, BID (1X1)
     Route: 042
  66. PARKEMED [Concomitant]
     Active Substance: MEFENAMIC ACID
     Indication: PRODUCT USED FOR UNKNOWN INDICATION
     Dosage: 500 MG, TID
     Route: 005
  67. CIPROFLOXACIN. [Concomitant]
     Active Substance: CIPROFLOXACIN
     Indication: NASOPHARYNGITIS
     Dosage: UNK
     Route: 065
     Dates: start: 20150302, end: 20150308

REACTIONS (56)
  - Blood urea increased [Unknown]
  - Dysuria [Unknown]
  - Asthenia [Unknown]
  - Pyrexia [Unknown]
  - Hepatomegaly [Unknown]
  - Polychromasia [Unknown]
  - Cardiac failure [Unknown]
  - Blood creatinine increased [Unknown]
  - Dysaesthesia [Unknown]
  - Poikilocytosis [Unknown]
  - Thrombocytosis [Recovering/Resolving]
  - Arthralgia [Unknown]
  - Erythropoiesis abnormal [Unknown]
  - Gastrointestinal haemorrhage [Recovered/Resolved]
  - Hypotension [Unknown]
  - Pleural effusion [Unknown]
  - Productive cough [Recovered/Resolved]
  - Urinary tract infection [Unknown]
  - Visual impairment [Unknown]
  - Diarrhoea [Unknown]
  - Abdominal pain upper [Unknown]
  - Lymphocyte count decreased [Unknown]
  - Urinary retention [Unknown]
  - Ascites [Unknown]
  - Bronchitis [Recovered/Resolved]
  - Cough [Unknown]
  - Epistaxis [Recovered/Resolved]
  - Red blood cell count increased [Unknown]
  - Glomerular filtration rate decreased [Unknown]
  - General physical health deterioration [Unknown]
  - Respiratory distress [Unknown]
  - Scoliosis [Unknown]
  - Faeces soft [Unknown]
  - Aortic arteriosclerosis [Unknown]
  - Faeces discoloured [Unknown]
  - Nasopharyngitis [Recovered/Resolved]
  - Polyneuropathy [Unknown]
  - Febrile neutropenia [Unknown]
  - Haemoglobin decreased [Unknown]
  - Nasopharyngitis [Recovered/Resolved]
  - Pain [Unknown]
  - Paraesthesia [Unknown]
  - Urethral prolapse [Unknown]
  - Gallbladder enlargement [Unknown]
  - Ventricular arrhythmia [Unknown]
  - Mitral valve incompetence [Unknown]
  - Renal cyst [Unknown]
  - Neuropathy peripheral [Unknown]
  - Cholecystitis [Unknown]
  - Fatigue [Unknown]
  - Blood potassium increased [Unknown]
  - Death [Fatal]
  - Dizziness [Unknown]
  - Pancytopenia [Unknown]
  - General physical health deterioration [Recovered/Resolved]
  - Platelet count increased [Unknown]

NARRATIVE: CASE EVENT DATE: 20130626
